FAERS Safety Report 4758604-2 (Version None)
Quarter: 2005Q3

REPORT INFORMATION
  Report Type: 
  Country: None (occurrence: None)
  Receive Date: 20050830
  Receipt Date: 20050830
  Transmission Date: 20060218
  Serious: Yes (Hospitalization)
  Sender: FDA-Public Use
  Company Number: None

PATIENT
  Sex: Female
  Weight: 191 kg

DRUGS (5)
  1. REMODULIN [Suspect]
     Indication: PULMONARY HYPERTENSION
     Dosage: CONTINUOUS IV
     Route: 042
  2. ASPIRIN [Concomitant]
  3. LASIX [Concomitant]
  4. COUMADIN [Concomitant]
  5. KAY CIEL DURA-TABS [Concomitant]

REACTIONS (1)
  - CEREBROVASCULAR ACCIDENT [None]
